FAERS Safety Report 8928047 (Version 1)
Quarter: 2012Q4

REPORT INFORMATION
  Report Type: Spontaneous
  Country: BR (occurrence: None)
  Receive Date: 20121120
  Receipt Date: 20121120
  Transmission Date: 20130627
  Serious: Yes (Other)
  Sender: FDA-Public Use
  Company Number: BR-ACCORD-015244

PATIENT
  Age: 48 Year
  Sex: Female

DRUGS (4)
  1. PACLITAXEL (PACLITAXEL) [Suspect]
     Indication: MALIGNANT BREAST NEOPLASM
     Route: 042
     Dates: start: 20121023, end: 20121023
  2. RANITIDINE [Concomitant]
  3. DEXAMETHASONE [Concomitant]
  4. ONDANSETRON [Concomitant]

REACTIONS (9)
  - Erythema [None]
  - Feeling hot [None]
  - Breast cancer [None]
  - Malignant neoplasm progression [None]
  - Treatment noncompliance [None]
  - Drug intolerance [None]
  - Gastrointestinal disorder [None]
  - Infusion related reaction [None]
  - Heart rate increased [None]
